FAERS Safety Report 11487815 (Version 2)
Quarter: 2015Q3

REPORT INFORMATION
  Report Type: Other
  Country: GB (occurrence: GB)
  Receive Date: 20150909
  Receipt Date: 20150922
  Transmission Date: 20151125
  Serious: Yes (Other)
  Sender: FDA-Public Use
  Company Number: GB-MYLANLABS-2015M1029275

PATIENT

DRUGS (4)
  1. AVASTIN [Suspect]
     Active Substance: BEVACIZUMAB
     Indication: ADENOCARCINOMA GASTRIC
     Dosage: DATE OF LAST DOSE PRIOR TO SAE : 05/JUL/2012
     Route: 042
     Dates: start: 20120517
  2. CISPLATIN. [Suspect]
     Active Substance: CISPLATIN
     Indication: ADENOCARCINOMA GASTRIC
     Dosage: DATE OF LAST DOSE PRIOR TO SAE : 05/JUL/2012
     Route: 042
     Dates: start: 20120517
  3. EPIRUBICIN [Suspect]
     Active Substance: EPIRUBICIN
     Indication: ADENOCARCINOMA GASTRIC
     Dosage: DATE OF LAST DOSE PRIOR TO SAE : 05/JUL/2012
     Route: 042
     Dates: start: 20120517
  4. XELODA [Suspect]
     Active Substance: CAPECITABINE
     Indication: ADENOCARCINOMA GASTRIC
     Dosage: DATE OF LAST DOSE PRIOR TO SAE : 05/JUL/2012
     Route: 048
     Dates: start: 20120517

REACTIONS (1)
  - Pain in extremity [Unknown]

NARRATIVE: CASE EVENT DATE: 20120729
